FAERS Safety Report 10003870 (Version 2)
Quarter: 2014Q3

REPORT INFORMATION
  Report Type: Spontaneous
  Country: US (occurrence: US)
  Receive Date: 20140312
  Receipt Date: 20140904
  Transmission Date: 20150326
  Serious: Yes (Other)
  Sender: FDA-Public Use
  Company Number: US-BAYER-2014-035438

PATIENT
  Age: 29 Year
  Sex: Female
  Weight: 77.98 kg

DRUGS (5)
  1. YASMIN [Suspect]
     Active Substance: DROSPIRENONE\ETHINYL ESTRADIOL
     Dosage: UNK
     Dates: start: 200401, end: 2005
  2. PROPOXYPHENE NAPSYLATE W/ACETAMINOPHENE [Concomitant]
     Active Substance: ACETAMINOPHEN\PROPOXYPHENE NAPSYLATE
     Dosage: 100/650 MG
     Dates: start: 20050216
  3. ADVIL COLD [Concomitant]
     Indication: LIMB INJURY
  4. DARVOCET-N 100 [Concomitant]
     Active Substance: ACETAMINOPHEN\PROPOXYPHENE NAPSYLATE
  5. TORADOL [Concomitant]
     Active Substance: KETOROLAC TROMETHAMINE
     Dosage: 60 MG, UNK

REACTIONS (8)
  - Thrombosis [None]
  - Injury [None]
  - Emotional distress [None]
  - Deep vein thrombosis [None]
  - Anxiety [None]
  - Pain [None]
  - Abdominal pain [None]
  - General physical health deterioration [None]

NARRATIVE: CASE EVENT DATE: 200503
